FAERS Safety Report 11379690 (Version 1)
Quarter: 2015Q3

REPORT INFORMATION
  Report Type: Spontaneous
  Country: US (occurrence: None)
  Receive Date: 20150813
  Receipt Date: 20150813
  Transmission Date: 20151125
  Serious: No
  Sender: FDA-Public Use
  Company Number: None

PATIENT
  Age: 68 Year
  Sex: Male
  Weight: 83.92 kg

DRUGS (3)
  1. LEVO/CARD TRAMADOL [Concomitant]
  2. ENTACAPONE. [Concomitant]
     Active Substance: ENTACAPONE
  3. MIRAPEX [Suspect]
     Active Substance: PRAMIPEXOLE DIHYDROCHLORIDE
     Indication: PARKINSON^S DISEASE
     Dosage: 1/2 (.75) TAB
     Route: 048
     Dates: start: 200606, end: 20150711

REACTIONS (3)
  - Sudden onset of sleep [None]
  - Hallucination [None]
  - Gambling [None]

NARRATIVE: CASE EVENT DATE: 20150708
